FAERS Safety Report 9896888 (Version 1)
Quarter: 2014Q1

REPORT INFORMATION
  Report Type: Spontaneous
  Country: GB (occurrence: GB)
  Receive Date: 20140214
  Receipt Date: 20140214
  Transmission Date: 20141002
  Serious: Yes (Death)
  Sender: FDA-Public Use
  Company Number: GB-PAR PHARMACEUTICAL, INC-2014SCPR008914

PATIENT
  Sex: 0

DRUGS (1)
  1. DOXYCYCLINE [Suspect]
     Indication: DERMATITIS
     Dosage: 50 MG, BID
     Route: 065

REACTIONS (2)
  - Completed suicide [Fatal]
  - Death [Fatal]
